FAERS Safety Report 23365685 (Version 2)
Quarter: 2024Q1

REPORT INFORMATION
  Report Type: Report from Study
  Country: CA (occurrence: CA)
  Receive Date: 20240104
  Receipt Date: 20240320
  Transmission Date: 20240410
  Serious: Yes (Other)
  Sender: FDA-Public Use
  Company Number: CA-SANDOZ-SDZ2023CA053028

PATIENT
  Sex: Female

DRUGS (3)
  1. HYRIMOZ [Suspect]
     Active Substance: ADALIMUMAB-ADAZ
     Dosage: 40 MG
     Route: 058
     Dates: start: 20230815
  2. HYRIMOZ [Suspect]
     Active Substance: ADALIMUMAB-ADAZ
     Indication: Rheumatoid arthritis
     Dosage: 40 MG
     Route: 058
     Dates: start: 20220301
  3. IRON [Concomitant]
     Active Substance: IRON
     Indication: Anaemia
     Dosage: UNK
     Route: 065

REACTIONS (15)
  - Rectal haemorrhage [Recovered/Resolved]
  - Macular degeneration [Unknown]
  - Osteoarthritis [Unknown]
  - Weight increased [Unknown]
  - Impaired quality of life [Unknown]
  - Arthralgia [Unknown]
  - Asthenopia [Unknown]
  - Drug hypersensitivity [Recovered/Resolved]
  - Insomnia [Recovered/Resolved]
  - Condition aggravated [Recovered/Resolved]
  - Scratch [Unknown]
  - Cellulitis [Unknown]
  - Influenza like illness [Unknown]
  - Pruritus [Recovered/Resolved]
  - Contusion [Recovered/Resolved]
